FAERS Safety Report 6167196-5 (Version None)
Quarter: 2009Q2

REPORT INFORMATION
  Report Type: 
  Country: None (occurrence: None)
  Receive Date: 20090424
  Receipt Date: 20090414
  Transmission Date: 20091009
  Serious: Yes (Life-Threatening, Hospitalization)
  Sender: FDA-Public Use
  Company Number: FR-ABBOTT-09P-056-0568096-00

PATIENT
  Sex: Female

DRUGS (7)
  1. HUMIRA [Suspect]
     Indication: RHEUMATOID ARTHRITIS
     Route: 058
     Dates: start: 20050501, end: 20090101
  2. HUMIRA [Suspect]
     Route: 058
     Dates: start: 20031001, end: 20040501
  3. METHOTREXATE [Suspect]
     Indication: RHEUMATOID ARTHRITIS
     Dosage: 2.5MG X 3 TABLETS PER WEEK
     Route: 048
     Dates: start: 20000101
  4. METHOTREXATE [Suspect]
     Dates: start: 19920101, end: 19960101
  5. SPECIAFOLDINE [Concomitant]
     Indication: DRUG USE FOR UNKNOWN INDICATION
     Route: 048
  6. ANALGESICS [Concomitant]
     Indication: DRUG USE FOR UNKNOWN INDICATION
  7. FOLIC ACID [Concomitant]
     Indication: DRUG USE FOR UNKNOWN INDICATION

REACTIONS (5)
  - CEREBELLAR SYNDROME [None]
  - DYSARTHRIA [None]
  - FALL [None]
  - SQUAMOUS CELL CARCINOMA [None]
  - WOUND [None]
